FAERS Safety Report 23525748 (Version 1)
Quarter: 2024Q1

REPORT INFORMATION
  Report Type: Other
  Country: FR (occurrence: FR)
  Receive Date: 20240215
  Receipt Date: 20240215
  Transmission Date: 20240410
  Serious: Yes (Death, Hospitalization)
  Sender: FDA-Public Use
  Company Number: None

PATIENT
  Age: 67 Year
  Sex: Male
  Weight: 116 kg

DRUGS (7)
  1. MICAFUNGIN [Suspect]
     Active Substance: MICAFUNGIN SODIUM
     Indication: Product used for unknown indication
     Route: 042
     Dates: start: 20240118, end: 20240125
  2. VANCOMYCIN [Suspect]
     Active Substance: VANCOMYCIN
     Indication: Pneumonia bacterial
     Dosage: 1 DF, ONCE DAILY, (PSE)
     Route: 042
     Dates: start: 20240122, end: 20240126
  3. IOBITRIDOL [Suspect]
     Active Substance: IOBITRIDOL
     Indication: Pneumonia bacterial
     Route: 042
     Dates: start: 20240122, end: 20240122
  4. PANTOPRAZOLE [Suspect]
     Active Substance: PANTOPRAZOLE
     Indication: Product used for unknown indication
     Route: 042
     Dates: start: 20240118, end: 20240125
  5. FUROSEMIDE [Suspect]
     Active Substance: FUROSEMIDE
     Indication: Generalised oedema
     Route: 042
     Dates: start: 20240117, end: 20240127
  6. FLUCONAZOLE [Concomitant]
     Active Substance: FLUCONAZOLE
     Indication: Fungal skin infection
     Route: 042
     Dates: start: 20240123
  7. MEROPENEM [Concomitant]
     Active Substance: MEROPENEM
     Indication: Pneumonia bacterial
     Dosage: 1 DF, ONCE DAILY (PSE)
     Route: 042
     Dates: start: 20240101

REACTIONS (2)
  - Eosinophilia [Fatal]
  - Rash maculo-papular [Fatal]

NARRATIVE: CASE EVENT DATE: 20240126
